FAERS Safety Report 9819374 (Version 1)
Quarter: 2014Q1

REPORT INFORMATION
  Report Type: Spontaneous
  Country: US (occurrence: None)
  Receive Date: 20140113
  Receipt Date: 20140113
  Transmission Date: 20141002
  Serious: Yes (Other)
  Sender: FDA-Public Use
  Company Number: AUR-APL-2014-00108

PATIENT
  Age: 71 Year
  Sex: Female
  Weight: 56.24 kg

DRUGS (8)
  1. ALENDRONIC ACID [Suspect]
     Indication: OSTEOPOROSIS
     Route: 048
     Dates: start: 20131030, end: 20131208
  2. GARLIC (ALLIUM SATIVUM) [Concomitant]
  3. INSULIN BOVINE (INSULIN BOVINE) [Concomitant]
  4. INSULIN ISOPHANE BOVINE (INSULIN ISOPHANE BOVINE) [Concomitant]
  5. LOSARTAN (LOSARTAN) [Concomitant]
  6. SELENIUM (SELENIUM) [Concomitant]
  7. SIMVASTATIN (SIMVASTATIN) [Concomitant]
  8. VITAMIN D3 (COLECALCIFEROL) [Concomitant]

REACTIONS (9)
  - Ocular hyperaemia [None]
  - Abdominal pain upper [None]
  - Oropharyngeal pain [None]
  - Dyspepsia [None]
  - Frequent bowel movements [None]
  - Feeling cold [None]
  - Discomfort [None]
  - Rash [None]
  - Rash [None]
